FAERS Safety Report 9777003 (Version 3)
Quarter: 2014Q1

REPORT INFORMATION
  Report Type: Report from Study
  Country: FR (occurrence: FR)
  Receive Date: 20131221
  Receipt Date: 20140205
  Transmission Date: 20141002
  Serious: Yes (Hospitalization)
  Sender: FDA-Public Use
  Company Number: FR-ROCHE-1161340

PATIENT
  Age: 38 Year
  Sex: Female

DRUGS (24)
  1. RITUXIMAB [Suspect]
     Indication: RHEUMATOID ARTHRITIS
     Dosage: DAY 1
     Route: 041
     Dates: start: 20050923
  2. RITUXIMAB [Suspect]
     Dosage: DAY 15
     Route: 041
     Dates: start: 20051007
  3. RITUXIMAB [Suspect]
     Dosage: DAY 1
     Route: 041
     Dates: start: 20060911
  4. RITUXIMAB [Suspect]
     Dosage: DAY 15
     Route: 041
     Dates: start: 20060925
  5. RITUXIMAB [Suspect]
     Dosage: DAY 1
     Route: 041
     Dates: start: 20070912
  6. RITUXIMAB [Suspect]
     Dosage: DAY 15
     Route: 041
     Dates: start: 20070925
  7. RITUXIMAB [Suspect]
     Dosage: DAY 1
     Route: 041
     Dates: start: 20080925
  8. RITUXIMAB [Suspect]
     Dosage: DAY 15
     Route: 041
     Dates: start: 20081009
  9. RITUXIMAB [Suspect]
     Dosage: DAY 1
     Route: 041
     Dates: start: 20090908
  10. RITUXIMAB [Suspect]
     Dosage: DAY 15
     Route: 041
     Dates: start: 20090923
  11. RITUXIMAB [Suspect]
     Dosage: DAY 1
     Route: 041
     Dates: start: 20100413
  12. RITUXIMAB [Suspect]
     Dosage: DAY 15
     Route: 041
     Dates: start: 20100427
  13. RITUXIMAB [Suspect]
     Dosage: DAY 1
     Route: 041
     Dates: start: 20101013
  14. RITUXIMAB [Suspect]
     Dosage: DAY 15
     Route: 041
     Dates: start: 20101027
  15. RITUXIMAB [Suspect]
     Dosage: DAY 1
     Route: 041
     Dates: start: 20110427
  16. RITUXIMAB [Suspect]
     Dosage: DAY 15
     Route: 041
     Dates: start: 20110513
  17. RITUXIMAB [Suspect]
     Dosage: DAY 1
     Route: 041
     Dates: start: 20111201
  18. RITUXIMAB [Suspect]
     Dosage: DAY 15
     Route: 041
     Dates: start: 20111215
  19. RITUXIMAB [Suspect]
     Dosage: DAY 1
     Route: 041
     Dates: start: 20120516
  20. RITUXIMAB [Suspect]
     Dosage: DAY 15
     Route: 041
     Dates: start: 20120530
  21. RITUXIMAB [Suspect]
     Dosage: DAY 1
     Route: 041
     Dates: start: 20121128
  22. RITUXIMAB [Suspect]
     Dosage: DAY 15
     Route: 041
     Dates: start: 20121212
  23. METHOTREXATE [Concomitant]
     Route: 065
  24. CORTANCYL [Concomitant]
     Dosage: TAPERED DOSE
     Route: 065

REACTIONS (9)
  - Respiratory failure [Unknown]
  - Polyuria [Recovered/Resolved]
  - Polydipsia [Recovered/Resolved]
  - Arthrodesis [Unknown]
  - Medical device removal [Unknown]
  - Asthenia [Recovered/Resolved]
  - H1N1 influenza [Recovered/Resolved]
  - Bronchitis [Not Recovered/Not Resolved]
  - Asthma [Recovered/Resolved]
